FAERS Safety Report 9574752 (Version 2)
Quarter: 2013Q4

REPORT INFORMATION
  Report Type: Report from Study
  Country: DE (occurrence: DE)
  Receive Date: 20131001
  Receipt Date: 20131211
  Transmission Date: 20140711
  Serious: Yes (Hospitalization)
  Sender: FDA-Public Use
  Company Number: DE-JNJFOC-20130913781

PATIENT
  Age: 71 Year
  Sex: Male
  Weight: 73 kg

DRUGS (4)
  1. ZYTIGA [Suspect]
     Indication: PROSTATE CANCER METASTATIC
     Route: 048
     Dates: start: 20130704, end: 20130821
  2. ZOMETA [Suspect]
     Indication: PROSTATE CANCER METASTATIC
     Route: 042
     Dates: start: 20121012, end: 20130812
  3. ELIGARD [Concomitant]
     Indication: PROSTATE CANCER METASTATIC
     Route: 058
     Dates: start: 20121002
  4. PREDNIHEXAL [Concomitant]
     Indication: PROSTATE CANCER METASTATIC
     Route: 048
     Dates: start: 20130225, end: 20130821

REACTIONS (1)
  - Osteonecrosis of jaw [Recovered/Resolved with Sequelae]
